FAERS Safety Report 22594608 (Version 1)
Quarter: 2023Q2

REPORT INFORMATION
  Report Type: Spontaneous
  Country: US (occurrence: None)
  Receive Date: 20230612
  Receipt Date: 20230612
  Transmission Date: 20230722
  Serious: No
  Sender: FDA-Public Use
  Company Number: None

PATIENT
  Age: 58 Year
  Sex: Male
  Weight: 90.72 kg

DRUGS (3)
  1. COSENTYX [Suspect]
     Active Substance: SECUKINUMAB
     Indication: Psoriasis
     Dosage: OTHER FREQUENCY : ONCE MONTHLY;?
     Route: 058
     Dates: start: 20220706
  2. ATENOLOL [Concomitant]
     Active Substance: ATENOLOL
  3. BUPROPION [Concomitant]
     Active Substance: BUPROPION

REACTIONS (2)
  - Localised infection [None]
  - Skin discolouration [None]

NARRATIVE: CASE EVENT DATE: 20230605
